FAERS Safety Report 6124371-3 (Version None)
Quarter: 2009Q1

REPORT INFORMATION
  Report Type: 
  Country: None (occurrence: None)
  Receive Date: 20090319
  Receipt Date: 20090310
  Transmission Date: 20090719
  Serious: Yes (Hospitalization, Other)
  Sender: FDA-Public Use
  Company Number: BR-ABBOTT-08P-020-0486193-00

PATIENT
  Sex: Female

DRUGS (3)
  1. DEPAKOTE [Suspect]
     Indication: CONVULSION PROPHYLAXIS
     Route: 048
     Dates: end: 20081017
  2. GARDENAL [Concomitant]
     Indication: DRUG USE FOR UNKNOWN INDICATION
  3. UNKNOWN THERAPY [Concomitant]
     Indication: DRUG USE FOR UNKNOWN INDICATION

REACTIONS (10)
  - ASTHENIA [None]
  - FEAR [None]
  - HEPATITIS [None]
  - HYPOPHAGIA [None]
  - ILL-DEFINED DISORDER [None]
  - IRRITABILITY [None]
  - PHOBIA [None]
  - SLEEP DISORDER [None]
  - TRANSAMINASES INCREASED [None]
  - URINARY TRACT INFECTION [None]
